FAERS Safety Report 18699031 (Version 2)
Quarter: 2021Q1

REPORT INFORMATION
  Report Type: Spontaneous
  Country: DE (occurrence: DE)
  Receive Date: 20210104
  Receipt Date: 20210209
  Transmission Date: 20210419
  Serious: Yes (Hospitalization)
  Sender: FDA-Public Use
  Company Number: DE-PFIZER INC-2020519440

PATIENT
  Sex: Female
  Weight: 2.25 kg

DRUGS (11)
  1. PARTUSISTEN [Suspect]
     Active Substance: FENOTEROL
     Dosage: 2 ML, SINGLE
     Route: 064
  2. CYTOTEC [Suspect]
     Active Substance: MISOPROSTOL
     Indication: LABOUR INDUCTION
     Dosage: 50 UG, SINGLE
     Route: 064
     Dates: start: 20180428, end: 20180428
  3. CYTOTEC [Suspect]
     Active Substance: MISOPROSTOL
     Dosage: 100 UG, SINGLE
     Route: 064
     Dates: start: 20180429, end: 20180429
  4. NIFEDIPINE. [Suspect]
     Active Substance: NIFEDIPINE
     Indication: TOCOLYSIS
  5. CYTOTEC [Suspect]
     Active Substance: MISOPROSTOL
     Indication: AMNIORRHEXIS
     Dosage: 100 UG, SINGLE
     Route: 064
     Dates: start: 20180428, end: 20180428
  6. PARTUSISTEN [Suspect]
     Active Substance: FENOTEROL
     Indication: HEART SOUNDS ABNORMAL
     Dosage: 2 ML, SINGLE
     Route: 064
  7. PARTUSISTEN [Suspect]
     Active Substance: FENOTEROL
     Dosage: 1 ML, SINGLE
     Route: 064
  8. L?THYROXIN [LEVOTHYROXINE] [Concomitant]
     Active Substance: LEVOTHYROXINE SODIUM
     Indication: HYPOTHYROIDISM
     Dosage: 25 UG
     Route: 064
     Dates: start: 2010
  9. NIFEDIPINE. [Suspect]
     Active Substance: NIFEDIPINE
     Indication: PREMATURE LABOUR
     Dosage: UNK
     Route: 064
  10. FOLIO [FOLIC ACID;POTASSIUM IODIDE] [Concomitant]
     Indication: NUTRITIONAL SUPPLEMENTATION
     Dosage: 1 DF, DAILY
     Route: 064
     Dates: start: 201710, end: 201804
  11. L?THYROXIN [LEVOTHYROXINE] [Concomitant]
     Active Substance: LEVOTHYROXINE SODIUM
     Dosage: 1 DF
     Dates: start: 2000

REACTIONS (5)
  - Motor developmental delay [Recovered/Resolved]
  - Heart sounds abnormal [Recovered/Resolved]
  - Premature baby [Recovered/Resolved]
  - Maternal exposure during delivery [Unknown]
  - Iron deficiency [Recovered/Resolved]

NARRATIVE: CASE EVENT DATE: 20180429
